FAERS Safety Report 5829657-5 (Version None)
Quarter: 2008Q3

REPORT INFORMATION
  Report Type: 
  Country: None (occurrence: None)
  Receive Date: 20080729
  Receipt Date: 20080714
  Transmission Date: 20090109
  Serious: Yes (Hospitalization)
  Sender: FDA-Public Use
  Company Number: 2008AL007360

PATIENT
  Age: 54 Year
  Sex: Female

DRUGS (11)
  1. DICLOFENAC SODIUM EXTENDED-RELEASE TAB [Suspect]
     Indication: TOOTH EXTRACTION
     Dosage: PO
     Route: 048
  2. FEVERAL (ACETAMINOPHEN RECTAL SUPPOSITORIES) [Suspect]
     Indication: TOOTH EXTRACTION
     Dosage: PO
     Route: 048
  3. HERBAL REMEDIES [Concomitant]
  4. LOVAZA [Concomitant]
  5. OMEGA-6 [Concomitant]
  6. DIRLA [Concomitant]
  7. SINK [Concomitant]
  8. PLAQUE OFF [Concomitant]
  9. B-VITAMIN [Concomitant]
  10. BETAKAROTEN [Concomitant]
  11. MAGNESIUM SULFATE [Concomitant]

REACTIONS (4)
  - ABDOMINAL PAIN LOWER [None]
  - CHEST PAIN [None]
  - HEPATITIS TOXIC [None]
  - MUSCULOSKELETAL PAIN [None]
